FAERS Safety Report 7677824-0 (Version None)
Quarter: 2011Q3

REPORT INFORMATION
  Report Type: 
  Country: None (occurrence: None)
  Receive Date: 20110808
  Receipt Date: 20110802
  Transmission Date: 20111222
  Serious: Yes (Other)
  Sender: FDA-Public Use
  Company Number: JP-ACCORD-010170

PATIENT
  Age: 63 Year
  Sex: Male

DRUGS (4)
  1. FLUOROURACIL [Suspect]
     Indication: SQUAMOUS CELL CARCINOMA
     Dosage: 600.00-MG/M2
  2. GEMCITABINE [Suspect]
     Dosage: 700.00-MG/M2
  3. NEDAPLATIN (NEDAPLATIN) [Suspect]
     Indication: SQUAMOUS CELL CARCINOMA
     Dosage: 70.00-MG/M2
  4. DOCETAXEL (DOCETAZEL) [Suspect]
     Dosage: 50.00-MG/M2

REACTIONS (5)
  - NEUTROPENIA [None]
  - INFLAMMATORY PSEUDOTUMOUR [None]
  - METASTASES TO LUNG [None]
  - LEIOMYOSARCOMA [None]
  - THROMBOCYTOPENIA [None]
